FAERS Safety Report 18902435 (Version 1)
Quarter: 2021Q1

REPORT INFORMATION
  Report Type: Spontaneous
  Country: CN (occurrence: CN)
  Receive Date: 20210217
  Receipt Date: 20210217
  Transmission Date: 20210420
  Serious: Yes (Death, Hospitalization)
  Sender: FDA-Public Use
  Company Number: CN-TEVA-2021-CN-1881858

PATIENT
  Age: 70 Year
  Sex: Male

DRUGS (5)
  1. ADRENALINE [Suspect]
     Active Substance: EPINEPHRINE
     Indication: CARDIAC FAILURE ACUTE
     Route: 065
     Dates: start: 2020
  2. CLOPIDOGREL [Suspect]
     Active Substance: CLOPIDOGREL BISULFATE
     Indication: ARTERIAL THROMBOSIS
     Route: 065
     Dates: start: 2020
  3. ASPIRIN. [Suspect]
     Active Substance: ASPIRIN
     Indication: ARTERIAL THROMBOSIS
     Route: 065
     Dates: start: 2020
  4. ENOXAPARIN SODIUM. [Suspect]
     Active Substance: ENOXAPARIN SODIUM
     Route: 058
     Dates: start: 202002
  5. ENOXAPARIN SODIUM. [Suspect]
     Active Substance: ENOXAPARIN SODIUM
     Indication: ARTERIAL THROMBOSIS
     Route: 058
     Dates: start: 20200208

REACTIONS (1)
  - Drug ineffective [Fatal]
